FAERS Safety Report 7146143-3 (Version None)
Quarter: 2010Q4

REPORT INFORMATION
  Report Type: 
  Country: None (occurrence: None)
  Receive Date: 20101124
  Receipt Date: 20101110
  Transmission Date: 20110411
  Serious: Yes (Other)
  Sender: FDA-Public Use
  Company Number: PI-05124-001

PATIENT
  Sex: Male

DRUGS (4)
  1. CHLORAPREP WITH TINT [Suspect]
     Indication: PREOPERATIVE CARE
     Dosage: 25 ML, ONCE, TOPICAL
     Route: 061
     Dates: start: 20100528
  2. SAGE CLOTH [Concomitant]
  3. LO-HIST [Concomitant]
  4. VICODIN [Concomitant]

REACTIONS (9)
  - APPLICATION SITE CELLULITIS [None]
  - APPLICATION SITE ERYTHEMA [None]
  - APPLICATION SITE INFECTION [None]
  - APPLICATION SITE OEDEMA [None]
  - APPLICATION SITE PAIN [None]
  - APPLICATION SITE PRURITUS [None]
  - APPLICATION SITE SCAR [None]
  - APPLICATION SITE VESICLES [None]
  - STAPHYLOCOCCAL INFECTION [None]
